FAERS Safety Report 9152022 (Version 2)
Quarter: 2013Q2

REPORT INFORMATION
  Report Type: Spontaneous
  Country: CO (occurrence: CO)
  Receive Date: 20130308
  Receipt Date: 20130516
  Transmission Date: 20140414
  Serious: Yes (Death, Hospitalization)
  Sender: FDA-Public Use
  Company Number: CO-ELI_LILLY_AND_COMPANY-CO201302009418

PATIENT
  Age: 67 Year
  Sex: Female

DRUGS (10)
  1. FORTEO [Suspect]
     Indication: OSTEOPOROSIS
     Dosage: 20MCG, DAILY
     Route: 058
     Dates: start: 20130124
  2. PREDNISONE [Concomitant]
  3. OMEPRAZOLE [Concomitant]
  4. FOLIC ACID [Concomitant]
  5. CHLOROQUINE [Concomitant]
  6. METHOTREXATE [Concomitant]
  7. CAPTOPRIL [Concomitant]
  8. LEFLUNOMIDE [Concomitant]
  9. LEVOTHYROXINE [Concomitant]
  10. CALCIUM + VITAMIN D [Concomitant]

REACTIONS (8)
  - Respiratory arrest [Fatal]
  - Urinary tract infection [Recovering/Resolving]
  - Malnutrition [Unknown]
  - Pneumonia [Unknown]
  - Discomfort [Recovering/Resolving]
  - Hyperhidrosis [Recovering/Resolving]
  - Nausea [Recovering/Resolving]
  - Vomiting [Recovering/Resolving]
